FAERS Safety Report 9154711 (Version 1)
Quarter: 2013Q1

REPORT INFORMATION
  Report Type: Spontaneous
  Country: US (occurrence: None)
  Receive Date: 20130305
  Receipt Date: 20130305
  Transmission Date: 20140127
  Serious: No
  Sender: FDA-Public Use
  Company Number: None

PATIENT
  Age: 48 Year
  Sex: Male
  Weight: 112.04 kg

DRUGS (1)
  1. NASONEX [Suspect]
     Indication: SINUS DISORDER
     Dosage: 1SPRAY EACH NOSTRIL 2X A DAY NASAL
     Route: 006
     Dates: start: 20121101, end: 20130201

REACTIONS (4)
  - Headache [None]
  - Epistaxis [None]
  - Cough [None]
  - Fatigue [None]
